FAERS Safety Report 10056082 (Version 3)
Quarter: 2014Q2

REPORT INFORMATION
  Report Type: Spontaneous
  Country: JP (occurrence: JP)
  Receive Date: 20140403
  Receipt Date: 20140418
  Transmission Date: 20141212
  Serious: Yes (Other)
  Sender: FDA-Public Use
  Company Number: JP-ASTELLAS-2014JP002559

PATIENT
  Age: 77 Year
  Sex: Female
  Weight: 40 kg

DRUGS (6)
  1. VESICARE [Suspect]
     Indication: HYPERTONIC BLADDER
     Route: 048
     Dates: start: 20130314, end: 20140303
  2. VESICARE [Suspect]
     Indication: POLLAKIURIA
  3. CELECOX [Concomitant]
     Indication: OSTEOARTHRITIS
     Route: 048
     Dates: start: 20140128
  4. PARIET [Concomitant]
     Indication: GASTROOESOPHAGEAL REFLUX DISEASE
     Route: 048
     Dates: start: 20100415
  5. MOSAPRIDE CITRATE [Concomitant]
     Indication: GASTRITIS
     Route: 048
     Dates: start: 20130606
  6. RECALBON [Concomitant]
     Indication: OSTEOPOROSIS
     Route: 048
     Dates: start: 20130110

REACTIONS (1)
  - Chest discomfort [Recovered/Resolved]
